FAERS Safety Report 8692591 (Version 2)
Quarter: 2013Q4

REPORT INFORMATION
  Report Type: Spontaneous
  Country: US (occurrence: US)
  Receive Date: 20120730
  Receipt Date: 20131031
  Transmission Date: 20140711
  Serious: No
  Sender: FDA-Public Use
  Company Number: US-009507513-2012SP016090

PATIENT
  Age: 59 Year
  Sex: Female
  Weight: 56.25 kg

DRUGS (6)
  1. CLARITIN-D [Suspect]
     Indication: MEDICAL OBSERVATION
     Dosage: UNK UNK, UNKNOWN
     Route: 048
     Dates: start: 201202
  2. CLARITIN-D [Suspect]
     Indication: NASAL CONGESTION
  3. WELLBUTRIN [Concomitant]
     Indication: DEPRESSION
     Dosage: UNK UNK, UNKNOWN
  4. CELEBREX [Concomitant]
     Indication: ARTHRITIS
     Dosage: UNK UNK, UNKNOWN
  5. CALCITONIN [Concomitant]
     Indication: OSTEOPETROSIS
     Dosage: UNK UNK, UNKNOWN
  6. AXERT [Concomitant]
     Indication: MIGRAINE
     Dosage: UNK UNK, UNKNOWN

REACTIONS (4)
  - Somnolence [Recovered/Resolved]
  - Condition aggravated [Recovered/Resolved]
  - Feeling abnormal [Recovered/Resolved]
  - No therapeutic response [Recovered/Resolved]
